FAERS Safety Report 5670558-3 (Version None)
Quarter: 2008Q1

REPORT INFORMATION
  Report Type: 
  Country: None (occurrence: None)
  Receive Date: 20080318
  Receipt Date: 20080304
  Transmission Date: 20080703
  Serious: Yes (Death, Hospitalization)
  Sender: FDA-Public Use
  Company Number: JP-AMGEN-US269182

PATIENT
  Age: 59 Year
  Sex: Female

DRUGS (3)
  1. ENBREL [Suspect]
     Indication: DRUG USE FOR UNKNOWN INDICATION
     Dosage: UNKNOWN
     Route: 058
     Dates: start: 20070501, end: 20080101
  2. PREDNISOLONE [Suspect]
     Route: 048
     Dates: start: 20080101, end: 20080101
  3. RHEUMATREX [Suspect]

REACTIONS (3)
  - BLOOD CULTURE POSITIVE [None]
  - DEAFNESS [None]
  - STAPHYLOCOCCAL INFECTION [None]
